FAERS Safety Report 4973640-9 (Version None)
Quarter: 2006Q2

REPORT INFORMATION
  Report Type: 
  Country: None (occurrence: None)
  Receive Date: 20060414
  Receipt Date: 20060210
  Transmission Date: 20061013
  Serious: Yes (Other)
  Sender: FDA-Public Use
  Company Number: US-ABBOTT-06P-163-0324631-00

PATIENT
  Sex: Female
  Weight: 47.67 kg

DRUGS (4)
  1. HUMIRA [Suspect]
     Indication: PSORIATIC ARTHROPATHY
     Route: 058
     Dates: start: 20051201, end: 20060206
  2. CALCIPOTRIENE [Concomitant]
     Indication: PRURITUS
  3. CLOBETASOL PROPIONATE [Concomitant]
     Indication: PSORIASIS
     Route: 061
     Dates: start: 20060220
  4. TRIAMCINOLONE [Concomitant]
     Indication: PRURITUS
     Dosage: 0.1% BID AND PRN
     Route: 061
     Dates: start: 20051201

REACTIONS (6)
  - CONFUSIONAL STATE [None]
  - DYSARTHRIA [None]
  - FATIGUE [None]
  - MULTIPLE SCLEROSIS [None]
  - NERVOUS SYSTEM DISORDER [None]
  - PRURITUS [None]
